FAERS Safety Report 15793104 (Version 1)
Quarter: 2019Q1

REPORT INFORMATION
  Report Type: Spontaneous
  Country: IL (occurrence: IL)
  Receive Date: 20190107
  Receipt Date: 20190107
  Transmission Date: 20190417
  Serious: Yes (Other)
  Sender: FDA-Public Use
  Company Number: PHHY2018IL199373

PATIENT
  Age: 20 Year
  Sex: Female
  Weight: 59 kg

DRUGS (5)
  1. FLUOXETINE [Concomitant]
     Active Substance: FLUOXETINE HYDROCHLORIDE
     Indication: MAJOR DEPRESSION
     Dosage: 20 MG, QD
     Route: 065
  2. METHYLPHENIDATE HYDROCHLORIDE. [Suspect]
     Active Substance: METHYLPHENIDATE HYDROCHLORIDE
     Indication: ATTENTION DEFICIT/HYPERACTIVITY DISORDER
     Dosage: UNK (FEW MONTHS)
     Route: 065
  3. METHYLPHENIDATE HYDROCHLORIDE. [Suspect]
     Active Substance: METHYLPHENIDATE HYDROCHLORIDE
     Indication: INCREASED APPETITE
  4. METHYLPHENIDATE HYDROCHLORIDE. [Suspect]
     Active Substance: METHYLPHENIDATE HYDROCHLORIDE
     Indication: OVERWEIGHT
  5. QUETIAPINE. [Concomitant]
     Active Substance: QUETIAPINE
     Indication: BULIMIA NERVOSA
     Dosage: 200 MG, QD
     Route: 065

REACTIONS (5)
  - Anxiety [Unknown]
  - Drug abuse [Unknown]
  - Headache [Unknown]
  - Product use in unapproved indication [Unknown]
  - Psychotic symptom [Unknown]
